FAERS Safety Report 8847325 (Version 4)
Quarter: 2012Q4

REPORT INFORMATION
  Report Type: 
  Country: US (occurrence: US)
  Receive Date: 20121018
  Receipt Date: 20121207
  Transmission Date: 20130627
  Serious: Yes (Other)
  Sender: FDA-Public Use
  Company Number: US-GILEAD-2012-0063230

PATIENT
  Sex: Female

DRUGS (2)
  1. LETAIRIS [Suspect]
     Indication: ATRIAL SEPTAL DEFECT
     Dosage: 5 mg, UNK
     Route: 048
     Dates: start: 20110606
  2. REVATIO [Concomitant]

REACTIONS (2)
  - Pregnancy [Unknown]
  - Labour complication [Unknown]
